FAERS Safety Report 12037262 (Version 3)
Quarter: 2016Q1

REPORT INFORMATION
  Report Type: Spontaneous
  Country: TW (occurrence: TW)
  Receive Date: 20160208
  Receipt Date: 20160301
  Transmission Date: 20160526
  Serious: Yes (Hospitalization)
  Sender: FDA-Public Use
  Company Number: TW-ROCHE-1707655

PATIENT
  Age: 70 Year
  Sex: Female

DRUGS (3)
  1. ETORICOXIB [Concomitant]
     Active Substance: ETORICOXIB
     Route: 048
  2. ACTEMRA [Suspect]
     Active Substance: TOCILIZUMAB
     Indication: RHEUMATOID ARTHRITIS
     Dosage: 4KG/MG
     Route: 042
     Dates: start: 20150713, end: 20160113
  3. HYDROXYCHLOROQUINE SULFATE. [Concomitant]
     Active Substance: HYDROXYCHLOROQUINE SULFATE
     Route: 048

REACTIONS (2)
  - Gastric cancer [Unknown]
  - Arthralgia [Unknown]

NARRATIVE: CASE EVENT DATE: 20160113
